FAERS Safety Report 10601432 (Version 1)
Quarter: 2014Q4

REPORT INFORMATION
  Report Type: Spontaneous
  Country: US (occurrence: None)
  Receive Date: 20141121
  Receipt Date: 20141121
  Transmission Date: 20150529
  Serious: No
  Sender: FDA-Public Use
  Company Number: None

PATIENT
  Age: 88 Year
  Sex: Female

DRUGS (2)
  1. ERIVEDGE [Suspect]
     Active Substance: VISMODEGIB
     Indication: BASAL CELL CARCINOMA
     Dosage: 1 CAPSULE
     Route: 048
     Dates: start: 20141001, end: 20141020
  2. ERIVEDGE [Suspect]
     Active Substance: VISMODEGIB
     Dosage: 1 CAPSULE
     Route: 048
     Dates: start: 20141001, end: 20141020

REACTIONS (6)
  - Fatigue [None]
  - Diarrhoea [None]
  - Decreased appetite [None]
  - Alopecia [None]
  - Weight decreased [None]
  - Dysgeusia [None]
